FAERS Safety Report 25846413 (Version 1)
Quarter: 2025Q3

REPORT INFORMATION
  Report Type: Report from Study
  Country: US (occurrence: US)
  Receive Date: 20250925
  Receipt Date: 20250925
  Transmission Date: 20251021
  Serious: Yes (Hospitalization, Other)
  Sender: PFIZER
  Company Number: US-PFIZER INC-PV202500114438

PATIENT
  Age: 82 Year
  Sex: Male

DRUGS (4)
  1. BRAFTOVI [Suspect]
     Active Substance: ENCORAFENIB
     Indication: Malignant melanoma
     Dosage: 450 MG ORALLY ONCE DAILY
     Route: 048
     Dates: start: 202409, end: 202503
  2. BRAFTOVI [Suspect]
     Active Substance: ENCORAFENIB
     Dosage: 300 MG ONCE DAILY
     Route: 048
     Dates: start: 202503, end: 20250724
  3. MEKTOVI [Suspect]
     Active Substance: BINIMETINIB
     Indication: Malignant melanoma
     Dosage: 45 MG ORALLY TWICE DAILY
     Route: 048
     Dates: start: 202409, end: 202503
  4. MEKTOVI [Suspect]
     Active Substance: BINIMETINIB
     Dosage: 30 MG TWICE DAILY
     Route: 048
     Dates: start: 202503, end: 20250724

REACTIONS (4)
  - Myocardial infarction [Unknown]
  - Discomfort [Recovered/Resolved]
  - Dysgeusia [Recovering/Resolving]
  - Dizziness [Recovered/Resolved]
